FAERS Safety Report 9691427 (Version 1)
Quarter: 2013Q4

REPORT INFORMATION
  Report Type: Spontaneous
  Country: US (occurrence: US)
  Receive Date: 20131115
  Receipt Date: 20131115
  Transmission Date: 20140711
  Serious: Yes (Hospitalization)
  Sender: FDA-Public Use
  Company Number: US-MALLINCKRODT-T201304825

PATIENT
  Age: 26 Year
  Sex: Male

DRUGS (1)
  1. METHADOSE [Suspect]
     Indication: PRODUCT USED FOR UNKNOWN INDICATION
     Route: 065

REACTIONS (4)
  - Overdose [Unknown]
  - Posterior reversible encephalopathy syndrome [Unknown]
  - Brain herniation [Unknown]
  - Brain stem haemorrhage [Unknown]
